FAERS Safety Report 9139273 (Version 1)
Quarter: 2013Q1

REPORT INFORMATION
  Report Type: Spontaneous
  Country: GB (occurrence: GB)
  Receive Date: 20130305
  Receipt Date: 20130305
  Transmission Date: 20140127
  Serious: Yes (Other)
  Sender: FDA-Public Use
  Company Number: PHFR2013GB001427

PATIENT
  Sex: 0

DRUGS (1)
  1. CICLOSPORIN [Suspect]
     Indication: COLITIS ULCERATIVE

REACTIONS (1)
  - Crohn^s disease [Unknown]
